FAERS Safety Report 9692898 (Version 3)
Quarter: 2014Q3

REPORT INFORMATION
  Report Type: Report from Study
  Country: PE (occurrence: PE)
  Receive Date: 20131118
  Receipt Date: 20140820
  Transmission Date: 20150326
  Serious: Yes (Hospitalization, Other)
  Sender: FDA-Public Use
  Company Number: PE-ROCHE-1303163

PATIENT
  Age: 71 Year
  Sex: Female

DRUGS (1)
  1. HERCEPTIN [Suspect]
     Active Substance: TRASTUZUMAB
     Indication: BREAST CANCER
     Route: 042
     Dates: start: 20111010, end: 20131213

REACTIONS (6)
  - Headache [Unknown]
  - Pain in extremity [Unknown]
  - Somnolence [Not Recovered/Not Resolved]
  - Convulsion [Unknown]
  - Speech disorder [Recovering/Resolving]
  - Gait disturbance [Recovering/Resolving]

NARRATIVE: CASE EVENT DATE: 201309
